FAERS Safety Report 5233874-5 (Version None)
Quarter: 2007Q1

REPORT INFORMATION
  Report Type: 
  Country: None (occurrence: None)
  Receive Date: 20070208
  Receipt Date: 20070207
  Transmission Date: 20070707
  Serious: Yes (Hospitalization, Other)
  Sender: FDA-Public Use
  Company Number: HQWYE550325JAN07

PATIENT
  Sex: Male
  Weight: 72.64 kg

DRUGS (3)
  1. INDERAL LA [Suspect]
     Indication: HYPERTROPHIC CARDIOMYOPATHY
     Route: 048
     Dates: start: 19851201, end: 20040101
  2. INDERAL LA [Suspect]
     Dosage: 80 MG AM AND 480 MG PM, DAILY
     Route: 048
     Dates: start: 20040101
  3. NONE [Concomitant]

REACTIONS (2)
  - DRUG DOSE OMISSION [None]
  - SUPRAVENTRICULAR TACHYCARDIA [None]
